FAERS Safety Report 20635011 (Version 1)
Quarter: 2022Q1

REPORT INFORMATION
  Report Type: Report from Study
  Country: CN (occurrence: CN)
  Receive Date: 20220325
  Receipt Date: 20220325
  Transmission Date: 20220423
  Serious: Yes (Other)
  Sender: FDA-Public Use
  Company Number: CN-JNJFOC-20220333989

PATIENT

DRUGS (1)
  1. DARATUMUMAB [Suspect]
     Active Substance: DARATUMUMAB
     Indication: Primary amyloidosis
     Dosage: ONCE WEEKLY IN WEEKS 18, ONCE EVERY 2 WEEKS IN WEEKS 916, AND ONCE MONTHLY FROM WEEK 17 ONWARDS
     Route: 042

REACTIONS (10)
  - Gastrointestinal infection [Unknown]
  - Respiratory tract infection [Unknown]
  - Lymphopenia [Unknown]
  - Drug ineffective for unapproved indication [Unknown]
  - Neutropenia [Unknown]
  - Anaemia [Unknown]
  - Infusion related reaction [Unknown]
  - Infection [Unknown]
  - Off label use [Unknown]
  - Product use in unapproved indication [Unknown]
